FAERS Safety Report 9306899 (Version 2)
Quarter: 2013Q4

REPORT INFORMATION
  Report Type: Spontaneous
  Country: GB (occurrence: GB)
  Receive Date: 20130523
  Receipt Date: 20131022
  Transmission Date: 20140711
  Serious: Yes (Disabling)
  Sender: FDA-Public Use
  Company Number: PHHY2013GB050204

PATIENT
  Age: 74 Year
  Sex: Male

DRUGS (5)
  1. CANDESARTAN CILEXETIL [Suspect]
     Indication: HYPERTENSION
     Dosage: 32 MG
     Route: 048
     Dates: start: 20130505, end: 20130507
  2. METFORMIN [Concomitant]
  3. GLICLAZIDE [Concomitant]
  4. BENDROFLUAZIDE [Concomitant]
  5. COATED ASPIRIN [Concomitant]

REACTIONS (8)
  - Confusional state [Recovered/Resolved]
  - Malaise [Recovered/Resolved]
  - Vertigo [Recovering/Resolving]
  - Headache [Recovered/Resolved]
  - Nausea [Recovered/Resolved]
  - Back pain [Recovered/Resolved]
  - Arthralgia [Recovered/Resolved]
  - Myalgia [Recovered/Resolved]
